FAERS Safety Report 8006006-8 (Version None)
Quarter: 2011Q4

REPORT INFORMATION
  Report Type: 
  Country: None (occurrence: None)
  Receive Date: 20111226
  Receipt Date: 20111216
  Transmission Date: 20120403
  Serious: Yes (Other)
  Sender: FDA-Public Use
  Company Number: US-AMGEN-USASP2011067320

PATIENT
  Age: 59 Year
  Sex: Female

DRUGS (2)
  1. ENBREL [Suspect]
     Indication: RHEUMATOID ARTHRITIS
     Dosage: 25 MG, 2 TIMES/WK
     Dates: start: 20040112
  2. METHOTREXATE [Concomitant]
     Dosage: 1 MG, QWK
     Dates: start: 19880101

REACTIONS (6)
  - DIPLOPIA [None]
  - SJOGREN'S SYNDROME [None]
  - CRYING [None]
  - STRESS [None]
  - IVTH NERVE PARALYSIS [None]
  - EPISCLERITIS [None]
